FAERS Safety Report 7706792-8 (Version None)
Quarter: 2011Q3

REPORT INFORMATION
  Report Type: 
  Country: None (occurrence: None)
  Receive Date: 20110824
  Receipt Date: 20110819
  Transmission Date: 20111222
  Serious: Yes (Hospitalization)
  Sender: FDA-Public Use
  Company Number: US-MERCK-1107USA02621

PATIENT
  Age: 45 Year
  Sex: Female
  Weight: 107 kg

DRUGS (7)
  1. ZOCOR [Concomitant]
     Route: 048
  2. JANUVIA [Suspect]
     Indication: DIABETES MELLITUS
     Route: 048
     Dates: start: 20090101, end: 20110710
  3. PRINIVIL [Concomitant]
     Route: 048
  4. GLUCOPHAGE [Concomitant]
     Route: 065
  5. ASPIRIN [Concomitant]
     Route: 065
  6. LANTUS [Concomitant]
     Route: 065
  7. TOPROL-XL [Concomitant]
     Route: 065

REACTIONS (4)
  - MULTIMORBIDITY [None]
  - PRODUCT TASTE ABNORMAL [None]
  - WRONG TECHNIQUE IN DRUG USAGE PROCESS [None]
  - GASTROINTESTINAL ANASTOMOTIC LEAK [None]
